FAERS Safety Report 8463256-4 (Version None)
Quarter: 2012Q2

REPORT INFORMATION
  Report Type: 
  Country: None (occurrence: None)
  Receive Date: 20120625
  Receipt Date: 20120619
  Transmission Date: 20120825
  Serious: Yes (Hospitalization, Other)
  Sender: FDA-Public Use
  Company Number: US-BRISTOL-MYERS SQUIBB COMPANY-16562332

PATIENT
  Age: 66 Year
  Sex: Male
  Weight: 82 kg

DRUGS (1)
  1. IPILIMUMAB [Suspect]
     Indication: MALIGNANT MELANOMA
     Dosage: LAST DOSE:28MAR12 858MG WEEK 7,HELD ON WEEK 10
     Route: 042
     Dates: start: 20120215

REACTIONS (7)
  - ENTEROCOLITIS INFECTIOUS [None]
  - SYNCOPE [None]
  - DIARRHOEA [None]
  - ARTHRALGIA [None]
  - COLITIS [None]
  - DEHYDRATION [None]
  - MYALGIA [None]
